FAERS Safety Report 8875379 (Version 3)
Quarter: 2013Q1

REPORT INFORMATION
  Report Type: Report from Study
  Country: US (occurrence: US)
  Receive Date: 20121023
  Receipt Date: 20130117
  Transmission Date: 20140127
  Serious: No
  Sender: FDA-Public Use
  Company Number: US-VERTEX PHARMACEUTICAL INC.-2012-023130

PATIENT
  Sex: Male

DRUGS (3)
  1. VX-950 (TELAPREVIR) [Suspect]
     Indication: HEPATITIS C
     Dosage: 750 MG, TID
     Route: 048
     Dates: start: 2012, end: 201301
  2. RIBASPHERE [Suspect]
     Indication: HEPATITIS C
     Dosage: 400MG IN AM + 600MG IN PM, QD
     Route: 048
     Dates: start: 2012, end: 201301
  3. PEGASYS [Suspect]
     Indication: HEPATITIS C
     Dosage: 180 ?G, WEEKLY
     Route: 058
     Dates: start: 2012, end: 201301

REACTIONS (8)
  - Influenza like illness [Unknown]
  - Adverse event [Unknown]
  - Abscess oral [Unknown]
  - Oral mucosal blistering [Unknown]
  - Fatigue [Unknown]
  - Asthenia [Unknown]
  - Rash [Unknown]
  - Pruritus [Not Recovered/Not Resolved]
